FAERS Safety Report 13457116 (Version 1)
Quarter: 2017Q2

REPORT INFORMATION
  Report Type: Spontaneous
  Country: US (occurrence: US)
  Receive Date: 20170419
  Receipt Date: 20170419
  Transmission Date: 20170830
  Serious: No
  Sender: FDA-Public Use
  Company Number: US-009507513-1703USA010038

PATIENT
  Age: 25 Year
  Sex: Female
  Weight: 51.25 kg

DRUGS (1)
  1. IMPLANON [Suspect]
     Active Substance: ETONOGESTREL
     Dosage: IMPLANT, UNK
     Route: 059

REACTIONS (2)
  - Device deployment issue [Unknown]
  - No adverse event [Unknown]
